FAERS Safety Report 5787922-4 (Version None)
Quarter: 2008Q2

REPORT INFORMATION
  Report Type: 
  Country: None (occurrence: None)
  Receive Date: 20080625
  Receipt Date: 20080613
  Transmission Date: 20081010
  Serious: Yes (Hospitalization)
  Sender: FDA-Public Use
  Company Number: B0450497A

PATIENT
  Age: 26 Year
  Sex: Male
  Weight: 86 kg

DRUGS (3)
  1. BROXIL [Suspect]
     Indication: TONSILLITIS
     Dosage: 500MG THREE TIMES PER DAY
     Route: 065
     Dates: start: 20060530, end: 20060602
  2. AUGMENTIN '125' [Suspect]
     Indication: DRUG USE FOR UNKNOWN INDICATION
     Route: 065
     Dates: start: 20060602, end: 20060609
  3. NAPROXEN [Suspect]
     Indication: DRUG USE FOR UNKNOWN INDICATION
     Dosage: 500MG TWICE PER DAY
     Route: 065
     Dates: start: 20060609

REACTIONS (1)
  - RHABDOMYOLYSIS [None]
